FAERS Safety Report 7005061-1 (Version None)
Quarter: 2010Q3

REPORT INFORMATION
  Report Type: 
  Country: None (occurrence: None)
  Receive Date: 20100921
  Receipt Date: 20100916
  Transmission Date: 20110219
  Serious: Yes (Life-Threatening, Hospitalization)
  Sender: FDA-Public Use
  Company Number: GR-CELGENEUS-066-C5013-10070142

PATIENT
  Sex: Female
  Weight: 75 kg

DRUGS (10)
  1. CC-5013 [Suspect]
     Indication: MULTIPLE MYELOMA
     Route: 048
     Dates: start: 20100604, end: 20100624
  2. CC-5013 [Suspect]
     Route: 048
     Dates: start: 20100227
  3. DEXAMETHASONE [Suspect]
     Indication: MULTIPLE MYELOMA
     Route: 065
     Dates: start: 20100604, end: 20100701
  4. DEXAMETHASONE [Suspect]
     Route: 065
     Dates: start: 20100227
  5. ACETYLSALICYLIC ACID [Concomitant]
     Route: 048
     Dates: start: 20090227, end: 20100702
  6. VALACYCLOVIR [Concomitant]
     Route: 048
     Dates: start: 20090227, end: 20100702
  7. SULFAMETOXAZOL/TRIMETOPRIM [Concomitant]
     Indication: INFECTION PROPHYLAXIS
     Route: 048
     Dates: start: 20090227, end: 20100702
  8. OMEPRAZOLE [Concomitant]
     Indication: GASTRITIS PROPHYLAXIS
     Route: 048
     Dates: start: 20090227, end: 20100702
  9. OMEPRAZOLE [Concomitant]
     Route: 051
     Dates: start: 20100702, end: 20100712
  10. AMITRIPTYLINE W/PERPHENAZINE [Concomitant]
     Indication: DEPRESSION
     Route: 048
     Dates: start: 20080301, end: 20100702

REACTIONS (1)
  - PULMONARY EMBOLISM [None]
